FAERS Safety Report 9205992 (Version 2)
Quarter: 2013Q4

REPORT INFORMATION
  Report Type: Spontaneous
  Country: US (occurrence: US)
  Receive Date: 20130403
  Receipt Date: 20131101
  Transmission Date: 20140711
  Serious: Yes (Other)
  Sender: FDA-Public Use
  Company Number: US-BAYER-2013-039616

PATIENT
  Age: 15 Year
  Sex: Female

DRUGS (8)
  1. YASMIN [Suspect]
     Indication: ACNE
  2. DILAUDID [Concomitant]
     Route: 042
  3. TRAMADOL [Concomitant]
     Indication: PAIN
     Dosage: 50 MG, 1 TABLET FOUR TIMES DAILY AS NEEDED
     Route: 048
  4. HYOSCYAMINE [Concomitant]
     Dosage: 0.125 MG, TAKE 1 OR 2 TABLETS FOUR TIMES DAILY AS
     Route: 060
  5. TORADOL [Concomitant]
     Route: 042
  6. ZOFRAN [Concomitant]
     Route: 042
  7. KDUR [Concomitant]
     Route: 048
  8. DEMEROL [Concomitant]
     Indication: PAIN

REACTIONS (5)
  - Cholecystectomy [None]
  - Cholecystitis chronic [None]
  - Injury [None]
  - Pain [None]
  - Pain [None]
